FAERS Safety Report 6754054-8 (Version None)
Quarter: 2010Q2

REPORT INFORMATION
  Report Type: 
  Country: None (occurrence: None)
  Receive Date: 20100603
  Receipt Date: 20100525
  Transmission Date: 20101027
  Serious: Yes (Hospitalization, Other)
  Sender: FDA-Public Use
  Company Number: CA-JNJFOC-20100510083

PATIENT
  Sex: Male
  Weight: 77 kg

DRUGS (12)
  1. REMICADE [Suspect]
     Indication: COLITIS ULCERATIVE
     Dosage: THERAPY DURATION ^TO PRESENT^ AND ALSO AS ^UNKNOWN^ IF RE-INTRODUCED
     Route: 042
  2. NOVO ALENDRONATE [Concomitant]
     Route: 048
  3. CALCIUM CARBONATE [Concomitant]
  4. METOPROLOL TARTRATE [Concomitant]
     Dosage: DOSE REPORTED AS: ^50 MG 1.5 MG BID^
  5. K-DUR [Concomitant]
     Route: 048
  6. METFORMIN [Concomitant]
  7. LIPITOR [Concomitant]
     Route: 048
  8. ASPIRIN [Concomitant]
     Route: 048
  9. VITAMIN D [Concomitant]
     Route: 048
  10. OMEPRAZOLE [Concomitant]
     Route: 048
  11. MESALAMINE [Concomitant]
  12. VITAMIN TAB [Concomitant]
     Route: 048

REACTIONS (5)
  - BLOOD PRESSURE INCREASED [None]
  - CHEST PAIN [None]
  - HEART RATE INCREASED [None]
  - HEART RATE IRREGULAR [None]
  - INFUSION RELATED REACTION [None]
